FAERS Safety Report 12157621 (Version 3)
Quarter: 2019Q4

REPORT INFORMATION
  Report Type: Report from Study
  Country: US (occurrence: US)
  Receive Date: 20160308
  Receipt Date: 20191021
  Transmission Date: 20200122
  Serious: Yes (Disabling, Congenital Anomaly, Other)
  Sender: FDA-Public Use
  Company Number: US-ACCORD-038331

PATIENT
  Sex: Female
  Weight: 1.25 kg

DRUGS (1)
  1. METHOTREXATE. [Suspect]
     Active Substance: METHOTREXATE
     Indication: ABORTION INDUCED
     Route: 064

REACTIONS (14)
  - Brachydactyly [Recovering/Resolving]
  - Adactyly [Recovering/Resolving]
  - Premature baby [Unknown]
  - Cervical spinal stenosis [Not Recovered/Not Resolved]
  - Synostosis [Recovering/Resolving]
  - Clinodactyly [Recovering/Resolving]
  - Craniosynostosis [Recovered/Resolved]
  - Micrognathia [Unknown]
  - Ectrodactyly [Recovering/Resolving]
  - Muscle contracture [Recovering/Resolving]
  - Labia enlarged [Unknown]
  - Disorder of sex development [Unknown]
  - Foetal exposure during pregnancy [Unknown]
  - Foetal methotrexate syndrome [Recovering/Resolving]
